FAERS Safety Report 11082535 (Version 1)
Quarter: 2015Q2

REPORT INFORMATION
  Report Type: Spontaneous
  Country: US (occurrence: US)
  Receive Date: 20150501
  Receipt Date: 20150501
  Transmission Date: 20150821
  Serious: Yes (Hospitalization, Other)
  Sender: FDA-Public Use
  Company Number: US-ELI_LILLY_AND_COMPANY-US201504006689

PATIENT

DRUGS (1)
  1. ZYPREXA [Suspect]
     Active Substance: OLANZAPINE
     Indication: PRODUCT USED FOR UNKNOWN INDICATION
     Route: 065

REACTIONS (6)
  - Upper gastrointestinal haemorrhage [Unknown]
  - Thrombocytopenia [Unknown]
  - Dehydration [Unknown]
  - Anaemia [Unknown]
  - Tachycardia [Unknown]
  - Vomiting [Unknown]
